FAERS Safety Report 6368183-4 (Version None)
Quarter: 2009Q3

REPORT INFORMATION
  Report Type: 
  Country: None (occurrence: None)
  Receive Date: 20090922
  Receipt Date: 20090911
  Transmission Date: 20100115
  Serious: Yes (Hospitalization)
  Sender: FDA-Public Use
  Company Number: US-NOVOPROD-291656

PATIENT
  Sex: Female
  Weight: 55.329 kg

DRUGS (1)
  1. NORDITROPIN NORDIFLEX [Suspect]
     Indication: TURNER'S SYNDROME
     Dosage: UNK, QD
     Route: 058

REACTIONS (1)
  - SPINAL FRACTURE [None]
